FAERS Safety Report 20848668 (Version 1)
Quarter: 2022Q2

REPORT INFORMATION
  Report Type: Spontaneous
  Country: US (occurrence: US)
  Receive Date: 20220519
  Receipt Date: 20220519
  Transmission Date: 20220721
  Serious: Yes (Other)
  Sender: FDA-Public Use
  Company Number: US-PFIZER INC-202200702133

PATIENT
  Age: 32 Year
  Sex: Female

DRUGS (11)
  1. AMPICILLIN SODIUM\SULBACTAM SODIUM [Suspect]
     Active Substance: AMPICILLIN SODIUM\SULBACTAM SODIUM
     Indication: Antibiotic therapy
     Dosage: 3 G
     Route: 042
  2. AMPICILLIN SODIUM\SULBACTAM SODIUM [Suspect]
     Active Substance: AMPICILLIN SODIUM\SULBACTAM SODIUM
     Indication: Klebsiella infection
  3. FLUCONAZOLE [Suspect]
     Active Substance: FLUCONAZOLE
     Indication: Escherichia infection
     Dosage: 400 MG, DAILY
     Route: 042
  4. VANCOMYCIN HYDROCHLORIDE [Suspect]
     Active Substance: VANCOMYCIN HYDROCHLORIDE
     Indication: Escherichia infection
     Dosage: UNK
     Route: 042
  5. ERTAPENEM [Suspect]
     Active Substance: ERTAPENEM
     Indication: Antibiotic therapy
     Dosage: 1 G
     Route: 042
  6. MICAFUNGIN [Suspect]
     Active Substance: MICAFUNGIN
     Indication: Antifungal treatment
     Dosage: 100 MG, DAILY
  7. MICAFUNGIN [Suspect]
     Active Substance: MICAFUNGIN
     Indication: Klebsiella infection
  8. SULFAMYLON [Suspect]
     Active Substance: MAFENIDE ACETATE
     Indication: Wound
     Dosage: UNK
     Route: 061
  9. WARFARIN [Concomitant]
     Active Substance: WARFARIN
     Indication: Anticoagulant therapy
     Dosage: UNK
  10. WARFARIN [Concomitant]
     Active Substance: WARFARIN
     Indication: Angiopathy
  11. APIXABAN [Concomitant]
     Active Substance: APIXABAN
     Indication: Anticoagulant therapy
     Dosage: UNK

REACTIONS (2)
  - Clostridium difficile infection [Unknown]
  - Clostridium difficile colitis [Unknown]
